FAERS Safety Report 8958636 (Version 1)
Quarter: 2012Q4

REPORT INFORMATION
  Report Type: Spontaneous
  Country: US (occurrence: None)
  Receive Date: 20121206
  Receipt Date: 20121206
  Transmission Date: 20130627
  Serious: Yes (Other)
  Sender: FDA-Public Use
  Company Number: None

PATIENT
  Age: 58 Year
  Sex: Female
  Weight: 63.05 kg

DRUGS (2)
  1. HUMIRA [Suspect]
     Indication: RA
     Dosage: 40 mg QOWK  S-Q
     Route: 058
     Dates: start: 20121122
  2. HUMIRA [Suspect]
     Indication: RA
     Dates: start: 20121124

REACTIONS (1)
  - Musculoskeletal disorder [None]
